FAERS Safety Report 5503566-3 (Version None)
Quarter: 2007Q4

REPORT INFORMATION
  Report Type: 
  Country: None (occurrence: None)
  Receive Date: 20071029
  Receipt Date: 20071015
  Transmission Date: 20080405
  Serious: Yes (Death)
  Sender: FDA-Public Use
  Company Number: 2003JP005955

PATIENT
  Age: 52 Year
  Sex: Male

DRUGS (4)
  1. PROGRAF [Suspect]
     Indication: RENAL TRANSPLANT
     Dates: start: 20030218, end: 20030222
  2. SIMULECT [Suspect]
     Dosage: IV NOS
     Route: 042
     Dates: start: 20030220, end: 20030220
  3. MYCOPHENOLATE MOFETIL [Concomitant]
  4. STEROID [Concomitant]

REACTIONS (1)
  - POST PROCEDURAL MYOCARDIAL INFARCTION [None]
